FAERS Safety Report 9868062 (Version 1)
Quarter: 2014Q1

REPORT INFORMATION
  Report Type: Spontaneous
  Country: US (occurrence: US)
  Receive Date: 20140204
  Receipt Date: 20140204
  Transmission Date: 20141002
  Serious: Yes (Other)
  Sender: FDA-Public Use
  Company Number: US-FRI-1000053342

PATIENT
  Age: 67 Year
  Sex: Male

DRUGS (1)
  1. TUDORZA PRESSAIR [Suspect]

REACTIONS (1)
  - Urinary retention [Unknown]
